FAERS Safety Report 6395960-6 (Version None)
Quarter: 2009Q4

REPORT INFORMATION
  Report Type: 
  Country: None (occurrence: None)
  Receive Date: 20091009
  Receipt Date: 20090925
  Transmission Date: 20100525
  Serious: Yes (Hospitalization, Other)
  Sender: FDA-Public Use
  Company Number: PHEH2009US11069

PATIENT
  Sex: Male

DRUGS (9)
  1. EXJADE [Suspect]
     Indication: MYELODYSPLASTIC SYNDROME
     Dosage: 2 G, QD
     Route: 048
     Dates: start: 20090812, end: 20090906
  2. EXJADE [Suspect]
     Indication: IRON OVERLOAD
  3. CIPRO [Concomitant]
  4. FLOMAX [Concomitant]
  5. LOPRESSOR [Concomitant]
  6. LIPITOR [Concomitant]
  7. LISINOPRIL [Concomitant]
  8. DIGOXIN [Concomitant]
  9. LORTAB [Concomitant]

REACTIONS (35)
  - ACTIVATED PARTIAL THROMBOPLASTIN TIME PROLONGED [None]
  - ASPARTATE AMINOTRANSFERASE INCREASED [None]
  - BASOPHIL COUNT DECREASED [None]
  - BASOPHIL COUNT INCREASED [None]
  - BLOOD ALBUMIN DECREASED [None]
  - BLOOD ALKALINE PHOSPHATASE INCREASED [None]
  - BLOOD BILIRUBIN INCREASED [None]
  - BLOOD CALCIUM DECREASED [None]
  - BLOOD CHLORIDE DECREASED [None]
  - BLOOD CREATINE PHOSPHOKINASE DECREASED [None]
  - BLOOD CREATININE DECREASED [None]
  - BLOOD CREATININE INCREASED [None]
  - BLOOD GLUCOSE INCREASED [None]
  - BLOOD OSMOLARITY DECREASED [None]
  - BLOOD SODIUM DECREASED [None]
  - BLOOD UREA INCREASED [None]
  - DECREASED APPETITE [None]
  - FAECES DISCOLOURED [None]
  - FATIGUE [None]
  - HAEMATOCRIT DECREASED [None]
  - HAEMOGLOBIN DECREASED [None]
  - JAUNDICE [None]
  - LYMPHOCYTE COUNT DECREASED [None]
  - MONOCYTE COUNT INCREASED [None]
  - NEUTROPHIL COUNT DECREASED [None]
  - PLATELET COUNT DECREASED [None]
  - PROTEIN URINE [None]
  - PROTHROMBIN TIME PROLONGED [None]
  - PRURITUS [None]
  - RED BLOOD CELL COUNT DECREASED [None]
  - RED BLOOD CELLS URINE POSITIVE [None]
  - RETICULOCYTE COUNT INCREASED [None]
  - URINE BILIRUBIN INCREASED [None]
  - URINE COLOUR ABNORMAL [None]
  - WHITE BLOOD CELL COUNT DECREASED [None]
